FAERS Safety Report 9661116 (Version 2)
Quarter: 2014Q2

REPORT INFORMATION
  Report Type: Spontaneous
  Country: CN (occurrence: None)
  Receive Date: 20131030
  Receipt Date: 20140519
  Transmission Date: 20141212
  Serious: Yes (Other)
  Sender: FDA-Public Use
  Company Number: VAL_02776_2013

PATIENT
  Sex: Male

DRUGS (4)
  1. LOTENSIN [Suspect]
     Indication: HYPERTENSION
     Dosage: 10MG QD, (IN THE AFTERNOON) ORAL
     Route: 048
     Dates: start: 20060101
  2. LOTENSIN [Suspect]
     Indication: RENAL IMPAIRMENT
     Dosage: 10MG QD, (IN THE AFTERNOON) ORAL
     Route: 048
     Dates: start: 20060101
  3. PLENDIL [Concomitant]
  4. BAYASPIRIN [Concomitant]

REACTIONS (5)
  - Blood pressure increased [None]
  - Drug ineffective [None]
  - Product taste abnormal [None]
  - Product quality issue [None]
  - Product counterfeit [None]
